FAERS Safety Report 7183473-3 (Version None)
Quarter: 2010Q4

REPORT INFORMATION
  Report Type: 
  Country: None (occurrence: None)
  Receive Date: 20101222
  Receipt Date: 20101214
  Transmission Date: 20110411
  Serious: Yes (Other)
  Sender: FDA-Public Use
  Company Number: US-PFIZER INC-2010170946

PATIENT
  Sex: Male
  Weight: 186.85 kg

DRUGS (2)
  1. VIAGRA [Suspect]
     Indication: ERECTILE DYSFUNCTION
     Dosage: 150 MG, 3X/DAY
     Route: 048
     Dates: end: 20101201
  2. VIAGRA [Suspect]
     Dosage: 200 MG, 2 TO 3 X A DAY
     Route: 048
     Dates: start: 20100101

REACTIONS (1)
  - PENIS DISORDER [None]
